FAERS Safety Report 11794959 (Version 1)
Quarter: 2015Q4

REPORT INFORMATION
  Report Type: Spontaneous
  Country: GB (occurrence: GB)
  Receive Date: 20151202
  Receipt Date: 20151202
  Transmission Date: 20160305
  Serious: Yes (Disabling)
  Sender: FDA-Public Use
  Company Number: GB-TEVA-610954ACC

PATIENT
  Age: 68 Year
  Sex: Female
  Weight: 82 kg

DRUGS (2)
  1. LOSARTAN. [Suspect]
     Active Substance: LOSARTAN
     Indication: HYPERTENSION
     Dosage: 50 MILLIGRAM DAILY;
     Route: 048
     Dates: start: 20150327, end: 20150410
  2. QUININE [Concomitant]
     Active Substance: QUININE
     Dosage: 200 MILLIGRAM DAILY;
     Dates: start: 2013

REACTIONS (8)
  - Deep vein thrombosis [Recovered/Resolved with Sequelae]
  - Erythema [Recovered/Resolved with Sequelae]
  - Skin hypertrophy [Unknown]
  - Sensation of blood flow [Recovered/Resolved with Sequelae]
  - Skin discolouration [Unknown]
  - Pain [Recovered/Resolved with Sequelae]
  - Impaired driving ability [Unknown]
  - Neuralgia [Recovered/Resolved with Sequelae]

NARRATIVE: CASE EVENT DATE: 20150327
